FAERS Safety Report 5254124-X (Version None)
Quarter: 2007Q1

REPORT INFORMATION
  Report Type: 
  Country: None (occurrence: None)
  Receive Date: 20070302
  Receipt Date: 20070224
  Transmission Date: 20070707
  Serious: Yes (Other)
  Sender: FDA-Public Use
  Company Number: US-JNJFOC-20070205966

PATIENT
  Age: 76 Year
  Sex: Female

DRUGS (3)
  1. REMICADE [Suspect]
     Indication: CROHN'S DISEASE
     Route: 042
  2. AZATHIOPRINE [Concomitant]
     Indication: CROHN'S DISEASE
  3. SULFASALAZINE [Concomitant]
     Indication: CROHN'S DISEASE

REACTIONS (1)
  - ATYPICAL MYCOBACTERIAL INFECTION [None]
